FAERS Safety Report 9404518 (Version 3)
Quarter: 2013Q4

REPORT INFORMATION
  Report Type: Spontaneous
  Country: US (occurrence: US)
  Receive Date: 20130717
  Receipt Date: 20131217
  Transmission Date: 20140711
  Serious: Yes (Hospitalization, Other)
  Sender: FDA-Public Use
  Company Number: US-ASTELLAS-2013US007370

PATIENT
  Age: 74 Year
  Sex: Male

DRUGS (1)
  1. XTANDI [Suspect]
     Indication: PROSTATE CANCER
     Dosage: 160 MG, UID/QD
     Route: 048
     Dates: start: 20130605

REACTIONS (9)
  - Dehydration [Unknown]
  - Haemoglobin decreased [Unknown]
  - Fall [Unknown]
  - Asthenia [Unknown]
  - Hypertension [Unknown]
  - Fall [Unknown]
  - Hyperhidrosis [Unknown]
  - Fatigue [Unknown]
  - Dementia [Unknown]
